FAERS Safety Report 8955961 (Version 2)
Quarter: 2013Q3

REPORT INFORMATION
  Report Type: Report from Study
  Country: JP (occurrence: JP)
  Receive Date: 20121210
  Receipt Date: 20130701
  Transmission Date: 20140515
  Serious: Yes (Other)
  Sender: FDA-Public Use
  Company Number: JP-009507513-1212JPN000254

PATIENT
  Age: 60 Year
  Sex: Male
  Weight: 63 kg

DRUGS (12)
  1. PEGINTRON [Suspect]
     Indication: CHRONIC HEPATITIS C
     Dosage: 1.5 MICROGRAM PER KILOGRAM, QW
     Route: 058
     Dates: start: 20120106
  2. REBETOL [Suspect]
     Indication: CHRONIC HEPATITIS C
     Dosage: 600 MG, QD
     Route: 048
     Dates: start: 20120106, end: 20120120
  3. REBETOL [Suspect]
     Dosage: 600 MG/2 DAYS
     Route: 048
     Dates: start: 20120121, end: 20120222
  4. REBETOL [Suspect]
     Dosage: 200 MG, QD
     Route: 048
     Dates: start: 20120223, end: 20120501
  5. REBETOL [Suspect]
     Dosage: 400 MG, QD
     Route: 048
     Dates: start: 20120502
  6. TELAVIC [Suspect]
     Indication: CHRONIC HEPATITIS C
     Dosage: 2250 MG, ONCE DAILY
     Route: 048
     Dates: start: 20120106, end: 20120112
  7. TELAVIC [Suspect]
     Dosage: 1500 MG,  DAILY
     Route: 048
     Dates: start: 20120113, end: 20120202
  8. DIOVAN [Concomitant]
     Indication: HYPERTENSION
     Dosage: 40 MG, QD
     Route: 048
     Dates: start: 20120105
  9. DIOVAN [Concomitant]
     Dosage: 10 MG, QD
     Route: 048
  10. DIOVAN [Concomitant]
     Dosage: 80 MG, QD
     Route: 048
     Dates: start: 20120105
  11. EPADEL [Concomitant]
     Indication: DYSLIPIDAEMIA
     Dosage: 900 MG, QD
     Route: 048
     Dates: start: 20120106
  12. DEPAS [Concomitant]
     Dosage: 1 MG, QD
     Route: 048
     Dates: end: 20120523

REACTIONS (2)
  - White blood cell count decreased [Unknown]
  - White blood cell count decreased [Recovered/Resolved]
